FAERS Safety Report 17296289 (Version 1)
Quarter: 2020Q1

REPORT INFORMATION
  Report Type: Spontaneous
  Country: PT (occurrence: PT)
  Receive Date: 20200122
  Receipt Date: 20200122
  Transmission Date: 20200409
  Serious: Yes (Other)
  Sender: FDA-Public Use
  Company Number: PT-B.I. PHARMACEUTICALS,INC./RIDGEFIELD-2020-BI-001753

PATIENT
  Sex: Female

DRUGS (3)
  1. VARGATEF [Suspect]
     Active Substance: NINTEDANIB
     Indication: PRODUCT USED FOR UNKNOWN INDICATION
     Route: 065
     Dates: end: 2019
  2. DOCETAXEL. [Concomitant]
     Active Substance: DOCETAXEL
     Indication: PRODUCT USED FOR UNKNOWN INDICATION
     Route: 065
     Dates: end: 2019
  3. VARGATEF [Suspect]
     Active Substance: NINTEDANIB
     Route: 065
     Dates: start: 2019

REACTIONS (3)
  - Arthralgia [Not Recovered/Not Resolved]
  - Myalgia [Not Recovered/Not Resolved]
  - Diarrhoea [Unknown]
